FAERS Safety Report 9415399 (Version 2)
Quarter: 2013Q3

REPORT INFORMATION
  Report Type: Spontaneous
  Country: US (occurrence: US)
  Receive Date: 20130723
  Receipt Date: 20130920
  Transmission Date: 20140515
  Serious: Yes (Hospitalization, Other)
  Sender: FDA-Public Use
  Company Number: US-MPIJNJ-2013-05149

PATIENT
  Sex: 0

DRUGS (1)
  1. VELCADE [Suspect]
     Indication: PLASMA CELL MYELOMA
     Dosage: 1.3 MG/M2, UNK
     Route: 042
     Dates: start: 20130326, end: 20130419

REACTIONS (4)
  - Pulmonary embolism [Recovered/Resolved]
  - Clostridium difficile colitis [Recovered/Resolved]
  - Atrial fibrillation [Recovered/Resolved]
  - Escherichia urinary tract infection [Recovered/Resolved]
